FAERS Safety Report 10179242 (Version 1)
Quarter: 2014Q2

REPORT INFORMATION
  Report Type: Report from Study
  Country: CA (occurrence: CA)
  Receive Date: 20140519
  Receipt Date: 20140519
  Transmission Date: 20141212
  Serious: Yes (Other)
  Sender: FDA-Public Use
  Company Number: CA-JNJFOC-20140507539

PATIENT
  Age: 70 Year
  Sex: Female
  Weight: 76 kg

DRUGS (16)
  1. REMICADE [Suspect]
     Indication: RHEUMATOID ARTHRITIS
     Route: 042
     Dates: start: 20021213
  2. REMICADE [Suspect]
     Indication: RHEUMATOID ARTHRITIS
     Route: 042
     Dates: start: 201404
  3. BUDESONIDE [Suspect]
     Indication: PRODUCT USED FOR UNKNOWN INDICATION
     Route: 065
  4. TYLENOL WITH CODEINE [Concomitant]
     Route: 065
  5. XANAX [Concomitant]
     Route: 065
  6. NORVASC [Concomitant]
     Route: 065
  7. GLICLAZIDE [Concomitant]
     Route: 065
  8. FOLATE [Concomitant]
     Route: 065
  9. ASA [Concomitant]
     Route: 065
  10. VITAMIN B12 [Concomitant]
     Route: 065
  11. LOSEC [Concomitant]
     Route: 065
  12. CARVEDILOL [Concomitant]
     Route: 065
  13. COVERSYL PLUS [Concomitant]
     Dosage: 1.25MG 1/2 TAB OD
     Route: 065
  14. SIMVASTATIN [Concomitant]
     Route: 065
  15. METAMUCIL [Concomitant]
     Route: 065
  16. VITAMIN D [Concomitant]
     Route: 065

REACTIONS (4)
  - Nasal septum perforation [Unknown]
  - Vomiting [Recovered/Resolved]
  - Influenza [Recovered/Resolved]
  - Nausea [Recovered/Resolved]
